FAERS Safety Report 9658796 (Version 2)
Quarter: 2013Q4

REPORT INFORMATION
  Report Type: Spontaneous
  Country: US (occurrence: US)
  Receive Date: 20131030
  Receipt Date: 20131030
  Transmission Date: 20140711
  Serious: No
  Sender: FDA-Public Use
  Company Number: US-PURDUE-USA-2011-0064745

PATIENT
  Age: 43 Year
  Sex: Male

DRUGS (2)
  1. OXYCONTIN (NDA 22-272) [Suspect]
     Indication: SPINAL FUSION SURGERY
     Dosage: 80MG, 2 TABLETS, Q6H
     Route: 048
     Dates: start: 201009
  2. OXYCONTIN (NDA 22-272) [Suspect]
     Indication: BACK PAIN

REACTIONS (6)
  - Pyrexia [Not Recovered/Not Resolved]
  - Inadequate analgesia [Not Recovered/Not Resolved]
  - Headache [Unknown]
  - Constipation [Unknown]
  - Hyperhidrosis [Not Recovered/Not Resolved]
  - Malaise [Not Recovered/Not Resolved]
